FAERS Safety Report 17308078 (Version 1)
Quarter: 2020Q1

REPORT INFORMATION
  Report Type: Spontaneous
  Country: US (occurrence: US)
  Receive Date: 20200122
  Receipt Date: 20200122
  Transmission Date: 20200409
  Serious: Yes (Other)
  Sender: FDA-Public Use
  Company Number: None

PATIENT
  Age: 62 Year
  Sex: Female
  Weight: 90 kg

DRUGS (3)
  1. ESTROGEL [Concomitant]
     Active Substance: ESTRADIOL
  2. AZELASTINE HCL [Suspect]
     Active Substance: AZELASTINE HYDROCHLORIDE
     Indication: OROPHARYNGEAL PAIN
     Dosage: ?          QUANTITY:1 SPRAY(S);OTHER ROUTE:NASALLY?
     Dates: start: 20200121, end: 20200121
  3. TESTOSTERONE. [Concomitant]
     Active Substance: TESTOSTERONE

REACTIONS (3)
  - Bladder irritation [None]
  - Cystitis [None]
  - Micturition urgency [None]

NARRATIVE: CASE EVENT DATE: 20200121
